FAERS Safety Report 12729602 (Version 1)
Quarter: 2016Q3

REPORT INFORMATION
  Report Type: Spontaneous
  Country: CN (occurrence: CN)
  Receive Date: 20160909
  Receipt Date: 20160909
  Transmission Date: 20161109
  Serious: Yes (Hospitalization, Other)
  Sender: FDA-Public Use
  Company Number: CN-MYLANLABS-2016M1038060

PATIENT

DRUGS (10)
  1. FLURBIPROFEN. [Suspect]
     Active Substance: FLURBIPROFEN
     Indication: ANTIINFLAMMATORY THERAPY
  2. LYRICA [Suspect]
     Active Substance: PREGABALIN
     Indication: ANALGESIC THERAPY
     Dosage: 150 MG, BID
     Route: 048
     Dates: start: 20160521, end: 20160608
  3. LIVALO [Concomitant]
     Active Substance: PITAVASTATIN CALCIUM
     Dosage: UNK
     Dates: start: 20160529, end: 20160609
  4. CALCITONIN SALMON. [Suspect]
     Active Substance: CALCITONIN SALMON
     Indication: SENILE OSTEOPOROSIS
     Dosage: 50 IU, QD
     Route: 030
     Dates: start: 20160529, end: 20160609
  5. LYRICA [Suspect]
     Active Substance: PREGABALIN
     Indication: PYREXIA
  6. FLURBIPROFEN. [Suspect]
     Active Substance: FLURBIPROFEN
     Indication: ANALGESIC THERAPY
     Dosage: 50 MG, BID
     Route: 030
     Dates: start: 20160529, end: 20160609
  7. FLURBIPROFEN. [Suspect]
     Active Substance: FLURBIPROFEN
     Indication: PYREXIA
  8. ROCALTROL [Concomitant]
     Active Substance: CALCITRIOL
     Dosage: UNK
     Dates: start: 20160529, end: 20160608
  9. CALCIUM CARBONATE. [Concomitant]
     Active Substance: CALCIUM CARBONATE
     Dosage: UNK
     Dates: start: 20160529, end: 20160609
  10. LYRICA [Suspect]
     Active Substance: PREGABALIN
     Indication: ANTIINFLAMMATORY THERAPY

REACTIONS (3)
  - Chills [Recovering/Resolving]
  - Stevens-Johnson syndrome [Recovering/Resolving]
  - Pyrexia [Recovering/Resolving]

NARRATIVE: CASE EVENT DATE: 20160606
